FAERS Safety Report 8437186-8 (Version None)
Quarter: 2012Q2

REPORT INFORMATION
  Report Type: 
  Country: None (occurrence: None)
  Receive Date: 20120614
  Receipt Date: 20120309
  Transmission Date: 20120825
  Serious: No
  Sender: FDA-Public Use
  Company Number: US-AMGEN-USASP2010008755

PATIENT
  Age: 89 Year
  Sex: Female
  Weight: 55.873 kg

DRUGS (11)
  1. LOSARTAN POTASSIUM [Concomitant]
     Dosage: 50 MG, QD
  2. ACIPHEX [Concomitant]
     Dosage: 20 MG, QD
  3. ALDACTAZIDE [Concomitant]
  4. COZAAR [Concomitant]
     Dosage: 50 MG, QD
  5. ATENOLOL [Concomitant]
     Dosage: 25 MG, QD
  6. CELEBREX [Concomitant]
     Dosage: 200 MG, UNK
  7. PROLIA [Suspect]
     Indication: OSTEOPOROSIS POSTMENOPAUSAL
     Dosage: 60 MG, Q6MO
     Route: 030
     Dates: start: 20110103
  8. SLOW FE [Concomitant]
     Dosage: UNK UNK, 3 TIMES/WK
  9. PRILOSEC [Concomitant]
     Dosage: 20 MG, BID
  10. SYNTHROID [Concomitant]
     Dosage: 0.025 MG, QD
  11. SPIRONOLACTONE [Concomitant]

REACTIONS (14)
  - PAIN IN JAW [None]
  - WEIGHT DECREASED [None]
  - FEELING ABNORMAL [None]
  - TOOTH ABSCESS [None]
  - INSOMNIA [None]
  - WEIGHT INCREASED [None]
  - HOT FLUSH [None]
  - ENDODONTIC PROCEDURE [None]
  - MYALGIA [None]
  - DECREASED APPETITE [None]
  - PRURITUS [None]
  - ERYTHEMA [None]
  - ORAL PAIN [None]
  - HYPOPHAGIA [None]
